FAERS Safety Report 10994756 (Version 1)
Quarter: 2015Q2

REPORT INFORMATION
  Report Type: Spontaneous
  Country: US (occurrence: US)
  Receive Date: 20150407
  Receipt Date: 20150407
  Transmission Date: 20150821
  Serious: No
  Sender: FDA-Public Use
  Company Number: US-ELI_LILLY_AND_COMPANY-US201503010766

PATIENT
  Sex: Female

DRUGS (2)
  1. HUMALOG [Suspect]
     Active Substance: INSULIN LISPRO
     Indication: TYPE 2 DIABETES MELLITUS
     Dosage: UNK UNK, PRN
     Dates: start: 2011
  2. HUMALOG [Suspect]
     Active Substance: INSULIN LISPRO
     Dosage: UNK
     Route: 065
     Dates: start: 2011

REACTIONS (7)
  - Blood glucose increased [Unknown]
  - Feeling abnormal [Unknown]
  - Pollakiuria [Unknown]
  - Incorrect product storage [Unknown]
  - Injection site pain [Unknown]
  - Blood glucose decreased [Unknown]
  - Abdominal discomfort [Unknown]
